FAERS Safety Report 5166161-4 (Version None)
Quarter: 2006Q4

REPORT INFORMATION
  Report Type: 
  Country: None (occurrence: None)
  Receive Date: 20061129
  Receipt Date: 20061116
  Transmission Date: 20070319
  Serious: Yes (Other)
  Sender: FDA-Public Use
  Company Number: 2006143711

PATIENT
  Age: 58 Year
  Sex: Male

DRUGS (1)
  1. VFEND [Suspect]
     Indication: FUNGAL INFECTION

REACTIONS (2)
  - BILIARY TRACT DISORDER [None]
  - LIVER FUNCTION TEST ABNORMAL [None]
